FAERS Safety Report 5016624-7 (Version None)
Quarter: 2006Q2

REPORT INFORMATION
  Report Type: 
  Country: None (occurrence: None)
  Receive Date: 20060602
  Receipt Date: 20060504
  Transmission Date: 20061013
  Serious: Yes (Other)
  Sender: FDA-Public Use
  Company Number: DE-GLAXOSMITHKLINE-D0049618A

PATIENT
  Age: 64 Year
  Sex: Male
  Weight: 98 kg

DRUGS (3)
  1. ARIXTRA [Suspect]
     Indication: THROMBOSIS PROPHYLAXIS
     Route: 065
     Dates: start: 20060411, end: 20060428
  2. OMEPRAZOLE [Suspect]
     Dates: start: 20060201
  3. MARCUMAR [Concomitant]
     Indication: VENOUS THROMBOSIS
     Dates: start: 20050901, end: 20060301

REACTIONS (5)
  - ACTINIC KERATOSIS [None]
  - HEPATIC ENZYME INCREASED [None]
  - HYPERHOMOCYSTEINAEMIA [None]
  - LIVER DISORDER [None]
  - MELANOCYTIC NAEVUS [None]
